FAERS Safety Report 6582512 (Version 2)
Quarter: 2013Q2

REPORT INFORMATION
  Report Type: Report from Study
  Country: US (occurrence: US)
  Receive Date: 20080314
  Receipt Date: 20130530
  Transmission Date: 20140414
  Serious: Yes (Other)
  Sender: FDA-Public Use
  Company Number: US-ABBOTT-07P-163-0429913-00

PATIENT
  Sex: Female

DRUGS (7)
  1. HUMIRA [Suspect]
     Indication: RHEUMATOID ARTHRITIS
  2. HUMIRA [Suspect]
  3. PREDNISONE [Concomitant]
     Indication: PRODUCT USED FOR UNKNOWN INDICATION
     Dosage: 5 MG DAILY
  4. DARVOCET [Concomitant]
     Indication: PRODUCT USED FOR UNKNOWN INDICATION
  5. FOSAMAX [Concomitant]
     Indication: OSTEOPOROSIS
  6. BONIVA [Concomitant]
     Indication: OSTEOPOROSIS
  7. ENBREL [Concomitant]
     Indication: PRODUCT USED FOR UNKNOWN INDICATION

REACTIONS (6)
  - Meniscus injury [Unknown]
  - Pneumonia [Unknown]
  - Pneumonia [Unknown]
  - Bronchitis [Unknown]
  - Nasopharyngitis [Unknown]
  - Respiratory tract infection [Unknown]
